FAERS Safety Report 24829904 (Version 1)
Quarter: 2025Q1

REPORT INFORMATION
  Report Type: Spontaneous
  Country: US (occurrence: US)
  Receive Date: 20250110
  Receipt Date: 20250110
  Transmission Date: 20250409
  Serious: No
  Sender: GLAXOSMITHKLINE
  Company Number: US-GSK-US2025000051

PATIENT
  Age: 45 Year
  Sex: Female

DRUGS (4)
  1. TRELEGY ELLIPTA [Suspect]
     Active Substance: FLUTICASONE FUROATE\UMECLIDINIUM BROMIDE\VILANTEROL TRIFENATATE
     Indication: Asthma
     Dates: start: 20210228, end: 20241030
  2. LEVOTHYROXINE [Concomitant]
     Active Substance: LEVOTHYROXINE
     Indication: Hypothyroidism
     Dates: start: 20221217
  3. OMEPRAZOLE [Concomitant]
     Active Substance: OMEPRAZOLE
     Indication: Dyspepsia
     Dates: start: 202501
  4. GRAMICIDIN;NEOMYCIN;NYSTATIN;TRIAMCINOLONE ACETONIDE [Concomitant]
     Indication: Lichen planus
     Dates: start: 20241212

REACTIONS (4)
  - Oral lichen planus [Not Recovered/Not Resolved]
  - Dental caries [Unknown]
  - Oral hyperkeratosis [Unknown]
  - Lichen planus [Not Recovered/Not Resolved]

NARRATIVE: CASE EVENT DATE: 20241002
